FAERS Safety Report 4591987-5 (Version None)
Quarter: 2005Q1

REPORT INFORMATION
  Report Type: 
  Country: None (occurrence: None)
  Receive Date: 20050125
  Receipt Date: 20040927
  Transmission Date: 20050727
  Serious: No
  Sender: FDA-Public Use
  Company Number: USA040874380

PATIENT
  Age: 72 Year
  Sex: Female
  Weight: 50 kg

DRUGS (11)
  1. RALOXIFENE HCL [Suspect]
     Indication: OSTEOPOROSIS
     Dosage: 60 MG/1 DAY
     Dates: start: 20010101, end: 20040710
  2. FORTEO [Suspect]
     Indication: OSTEOPOROSIS
     Dosage: 20 UG/1 DAY
     Dates: start: 20040704
  3. CALCIUM GLUCONATE [Concomitant]
  4. SYNTHROID [Concomitant]
  5. FOSAMAX [Concomitant]
  6. GLUCOSAMINE SULFATE [Concomitant]
  7. MEPROBAMATE [Concomitant]
  8. ACETYLSALICYLIC ACID SRT [Concomitant]
  9. MYLANTA [Concomitant]
  10. CALCIUM AND VITAMIN D [Concomitant]
  11. MV [Concomitant]

REACTIONS (9)
  - ABDOMINAL DISTENSION [None]
  - ARTHRALGIA [None]
  - INJECTION SITE ERYTHEMA [None]
  - INJECTION SITE HAEMORRHAGE [None]
  - INJECTION SITE PAIN [None]
  - INSOMNIA [None]
  - MENISCUS LESION [None]
  - MONARTHRITIS [None]
  - NERVOUSNESS [None]
